FAERS Safety Report 20792414 (Version 1)
Quarter: 2022Q2

REPORT INFORMATION
  Report Type: Other
  Country: CA (occurrence: CA)
  Receive Date: 20220506
  Receipt Date: 20220506
  Transmission Date: 20220721
  Serious: Yes (Other)
  Sender: FDA-Public Use
  Company Number: CA-CELLTRION INC.-2022CA005737

PATIENT

DRUGS (19)
  1. RITUXIMAB [Suspect]
     Active Substance: RITUXIMAB
     Indication: Rheumatoid arthritis
     Dosage: 1000.0 MILLIGRAM, 1 EVERY 2 WEEKS
     Route: 041
  2. ACTEMRA [Suspect]
     Active Substance: TOCILIZUMAB
     Indication: Rheumatoid arthritis
     Dosage: 800.0 MILLIGRAM, 1 EVERY 4 WEEKS
     Route: 042
  3. ACTEMRA [Suspect]
     Active Substance: TOCILIZUMAB
     Indication: Rheumatoid arthritis
     Dosage: 700.0 MILLIGRAM, 1 EVERY 4 WEEKS
     Route: 042
  4. DESOXIMETASONE [Suspect]
     Active Substance: DESOXIMETASONE
     Indication: Product used for unknown indication
     Route: 065
  5. ASPIRIN [Concomitant]
     Active Substance: ASPIRIN
     Route: 065
  6. AMOXICILLIN [Concomitant]
     Active Substance: AMOXICILLIN
  7. BISOPROLOL [Concomitant]
     Active Substance: BISOPROLOL
  8. CANNABIDIOL [Concomitant]
     Active Substance: CANNABIDIOL
     Indication: Pain
  9. CIMZIA [Concomitant]
     Active Substance: CERTOLIZUMAB PEGOL
     Route: 058
  10. EZETIMIBE [Concomitant]
     Active Substance: EZETIMIBE
  11. FOLIC ACID [Concomitant]
     Active Substance: FOLIC ACID
  12. INDAPAMIDE [Concomitant]
     Active Substance: INDAPAMIDE
  13. METFORMIN [Concomitant]
     Active Substance: METFORMIN HYDROCHLORIDE
     Route: 065
  14. PANTOPRAZOLE [Concomitant]
     Active Substance: PANTOPRAZOLE
  15. PRAVASTATIN [Concomitant]
     Active Substance: PRAVASTATIN
  16. TAMSULOSIN [Concomitant]
     Active Substance: TAMSULOSIN
  17. PANTOPRAZOLE MAGNESIUM [Concomitant]
     Active Substance: PANTOPRAZOLE MAGNESIUM
     Route: 065
  18. TIAZAC [Concomitant]
     Active Substance: DILTIAZEM HYDROCHLORIDE
  19. ULORIC [Concomitant]
     Active Substance: FEBUXOSTAT

REACTIONS (19)
  - Blood pressure systolic increased [Not Recovered/Not Resolved]
  - Contusion [Not Recovered/Not Resolved]
  - Discomfort [Not Recovered/Not Resolved]
  - Heart rate decreased [Not Recovered/Not Resolved]
  - Joint swelling [Not Recovered/Not Resolved]
  - Rheumatoid arthritis [Not Recovered/Not Resolved]
  - Scratch [Not Recovered/Not Resolved]
  - Tooth avulsion [Not Recovered/Not Resolved]
  - Tooth disorder [Not Recovered/Not Resolved]
  - Weight decreased [Not Recovered/Not Resolved]
  - Arthralgia [Not Recovered/Not Resolved]
  - Blood pressure fluctuation [Not Recovered/Not Resolved]
  - Blood pressure increased [Not Recovered/Not Resolved]
  - Fatigue [Not Recovered/Not Resolved]
  - Heart rate increased [Not Recovered/Not Resolved]
  - Illness [Not Recovered/Not Resolved]
  - Rash [Not Recovered/Not Resolved]
  - Urinary tract infection [Not Recovered/Not Resolved]
  - Drug ineffective [Not Recovered/Not Resolved]
